FAERS Safety Report 5086537-3 (Version None)
Quarter: 2006Q3

REPORT INFORMATION
  Report Type: 
  Country: None (occurrence: None)
  Receive Date: 20060823
  Receipt Date: 20060811
  Transmission Date: 20061208
  Serious: Yes (Hospitalization)
  Sender: FDA-Public Use
  Company Number: FR-GILEAD-2006-0010035

PATIENT
  Age: 45 Year
  Sex: Male
  Weight: 49 kg

DRUGS (4)
  1. VIREAD [Suspect]
     Indication: HIV INFECTION
     Route: 048
     Dates: start: 20030915, end: 20060118
  2. VIDEX [Concomitant]
     Indication: HIV INFECTION
     Route: 048
  3. NORVIR [Concomitant]
     Indication: HIV INFECTION
     Route: 048
  4. EPIVIR [Concomitant]
     Indication: HIV INFECTION
     Route: 048

REACTIONS (3)
  - BONE DENSITY DECREASED [None]
  - FANCONI SYNDROME ACQUIRED [None]
  - HYPERPHOSPHATURIA [None]
